FAERS Safety Report 6601151-3 (Version None)
Quarter: 2010Q1

REPORT INFORMATION
  Report Type: 
  Country: None (occurrence: None)
  Receive Date: 20100217
  Receipt Date: 20100125
  Transmission Date: 20100710
  Serious: Yes (Other)
  Sender: FDA-Public Use
  Company Number: 1000011621

PATIENT
  Sex: Male

DRUGS (3)
  1. CITALOPRAM HYDROBROMIDE [Suspect]
     Dosage: 40 MG (10 MG, 4 IN 1 D),0RAL; 120 MG (10 MG, 2 IN 1 D),ORAL
     Route: 048
     Dates: end: 20100111
  2. CITALOPRAM HYDROBROMIDE [Suspect]
     Dosage: 40 MG (10 MG, 4 IN 1 D),0RAL; 120 MG (10 MG, 2 IN 1 D),ORAL
     Route: 048
  3. CETIRIZINE [Concomitant]

REACTIONS (5)
  - DEPRESSION [None]
  - DRUG DISPENSING ERROR [None]
  - FATIGUE [None]
  - IRRITABILITY [None]
  - MEDICATION ERROR [None]
